FAERS Safety Report 6835577-X (Version None)
Quarter: 2010Q3

REPORT INFORMATION
  Report Type: 
  Country: None (occurrence: None)
  Receive Date: 20100713
  Receipt Date: 20100701
  Transmission Date: 20110219
  Serious: Yes (Hospitalization, Other)
  Sender: FDA-Public Use
  Company Number: US-ELI_LILLY_AND_COMPANY-US201004002765

PATIENT
  Sex: Female

DRUGS (11)
  1. FORTEO [Suspect]
     Indication: OSTEOPOROSIS
     Dosage: 20 UG, DAILY (1/D)
     Dates: start: 20090901, end: 20091001
  2. FORTEO [Suspect]
     Dosage: 20 UG, DAILY (1/D)
  3. BENICAR HCT [Concomitant]
     Dosage: UNK, DAILY (1/D)
  4. TOPROL-XL/00376903/ [Concomitant]
     Dosage: 25 MG, DAILY (1/D)
  5. NORVASC [Concomitant]
     Dosage: 10 MG, DAILY (1/D)
  6. PLAVIX [Concomitant]
     Dosage: 75 MG, DAILY (1/D)
  7. ASPIRIN [Concomitant]
     Dosage: 325 MG, DAILY (1/D)
  8. TAMOXIFEN [Concomitant]
     Dosage: 20 MG, DAILY (1/D)
  9. MEGACE ES [Concomitant]
     Dosage: 5 ML, DAILY (1/D)
  10. CALTRATE [Concomitant]
  11. LIPITOR [Concomitant]

REACTIONS (7)
  - ASTHENIA [None]
  - CORONARY ARTERY OCCLUSION [None]
  - DIZZINESS [None]
  - FATIGUE [None]
  - FEELING ABNORMAL [None]
  - LETHARGY [None]
  - MALAISE [None]
